FAERS Safety Report 5528379-8 (Version None)
Quarter: 2007Q4

REPORT INFORMATION
  Report Type: 
  Country: None (occurrence: None)
  Receive Date: 20071121
  Receipt Date: 20071107
  Transmission Date: 20080405
  Serious: Yes (Hospitalization)
  Sender: FDA-Public Use
  Company Number: 2007S1011610

PATIENT
  Age: 48 Year
  Sex: Male
  Weight: 123 kg

DRUGS (2)
  1. TERBINAFINE (TERBINAFINE) [Suspect]
     Indication: ONYCHOMYCOSIS
     Dosage: 250 MG; ORAL
     Route: 048
     Dates: start: 20070820, end: 20071001
  2. ORLISTAT [Concomitant]

REACTIONS (3)
  - BLOOD BLISTER [None]
  - PURPURA [None]
  - THROMBOCYTOPENIA [None]
